FAERS Safety Report 12876329 (Version 1)
Quarter: 2016Q4

REPORT INFORMATION
  Report Type: Spontaneous
  Country: US (occurrence: US)
  Receive Date: 20161021
  Receipt Date: 20161021
  Transmission Date: 20170207
  Serious: No
  Sender: FDA-Public Use
  Company Number: None

PATIENT
  Age: 47 Year
  Sex: Female
  Weight: 60.75 kg

DRUGS (3)
  1. NYSTATIN. [Suspect]
     Active Substance: NYSTATIN
     Indication: VULVOVAGINAL CANDIDIASIS
     Dosage: ?          QUANTITY:140 ML;?
     Route: 048
     Dates: start: 20161014, end: 20161021
  2. NYSTATIN. [Suspect]
     Active Substance: NYSTATIN
     Indication: ORAL CANDIDIASIS
     Dosage: ?          QUANTITY:140 ML;?
     Route: 048
     Dates: start: 20161014, end: 20161021
  3. VITAMINS [Concomitant]
     Active Substance: VITAMINS

REACTIONS (3)
  - Diet noncompliance [None]
  - Condition aggravated [None]
  - Candida infection [None]

NARRATIVE: CASE EVENT DATE: 20161017
